FAERS Safety Report 6379434-4 (Version None)
Quarter: 2009Q3

REPORT INFORMATION
  Report Type: 
  Country: None (occurrence: None)
  Receive Date: 20090928
  Receipt Date: 20090922
  Transmission Date: 20100115
  Serious: Yes (Hospitalization)
  Sender: FDA-Public Use
  Company Number: A0808943A

PATIENT
  Age: 52 Year
  Sex: Male

DRUGS (1)
  1. AVANDIA [Suspect]
     Dates: start: 19990101, end: 20060101

REACTIONS (4)
  - CORONARY ARTERY DISEASE [None]
  - DEPRESSION [None]
  - HYPERLIPIDAEMIA [None]
  - ISCHAEMIA [None]
